FAERS Safety Report 18573619 (Version 1)
Quarter: 2020Q4

REPORT INFORMATION
  Report Type: Spontaneous
  Country: US (occurrence: US)
  Receive Date: 20201016
  Receipt Date: 20201016
  Transmission Date: 20210114
  Serious: Yes (Other)
  Sender: FDA-Public Use
  Company Number: None

PATIENT
  Age: 7 Decade
  Sex: Female

DRUGS (5)
  1. LOPINAVIR-RITONAVIR [Suspect]
     Active Substance: LOPINAVIR\RITONAVIR
     Indication: COVID-19
     Dates: start: 2020
  2. AMOXICILLIN-CLAVULANATE [Suspect]
     Active Substance: AMOXICILLIN\CLAVULANIC ACID
     Route: 048
  3. DROTAVERINE [Suspect]
     Active Substance: DROTAVERINE
  4. RIBAVIRIN. [Suspect]
     Active Substance: RIBAVIRIN
  5. AZITHROMYCIN ANHYDROUS. [Suspect]
     Active Substance: AZITHROMYCIN ANHYDROUS

REACTIONS (6)
  - Off label use [None]
  - Vomiting [None]
  - Diarrhoea [None]
  - Drug intolerance [None]
  - Nausea [None]
  - Abdominal pain [None]
